FAERS Safety Report 4604014-8 (Version None)
Quarter: 2005Q1

REPORT INFORMATION
  Report Type: 
  Country: None (occurrence: None)
  Receive Date: 20050309
  Receipt Date: 20050309
  Transmission Date: 20050727
  Serious: Yes (Other)
  Sender: FDA-Public Use
  Company Number: None

PATIENT
  Age: 71 Year
  Sex: Female
  Weight: 59.8748 kg

DRUGS (1)
  1. OMEPRAZOLE [Suspect]
     Indication: BARRETT'S OESOPHAGUS
     Dosage: ONE CAPSULE BY MOUTH

REACTIONS (3)
  - DISCOMFORT [None]
  - DYSPEPSIA [None]
  - PAIN [None]
